FAERS Safety Report 16934435 (Version 1)
Quarter: 2019Q4

REPORT INFORMATION
  Report Type: Spontaneous
  Country: US (occurrence: US)
  Receive Date: 20191018
  Receipt Date: 20191018
  Transmission Date: 20200122
  Serious: No
  Sender: FDA-Public Use
  Company Number: US-BAYER-2019-187489

PATIENT
  Age: 57 Year
  Sex: Female
  Weight: 105.7 kg

DRUGS (1)
  1. CLARITIN [Suspect]
     Active Substance: LORATADINE
     Dosage: UNK

REACTIONS (3)
  - Nausea [Unknown]
  - Dyspnoea [Unknown]
  - Drug hypersensitivity [Unknown]
